FAERS Safety Report 25118763 (Version 1)
Quarter: 2025Q1

REPORT INFORMATION
  Report Type: Report from Study
  Country: NO (occurrence: NO)
  Receive Date: 20250325
  Receipt Date: 20250325
  Transmission Date: 20250408
  Serious: Yes (Death)
  Sender: MYLAN
  Company Number: NO-MYLANLABS-2025M1025093

PATIENT
  Sex: Female

DRUGS (2)
  1. METFORMIN [Suspect]
     Active Substance: METFORMIN HYDROCHLORIDE
     Indication: Ovarian granulosa cell tumour
     Dosage: UNK, QD
  2. LETROZOLE [Suspect]
     Active Substance: LETROZOLE
     Indication: Ovarian granulosa cell tumour
     Dosage: 2.5 MILLIGRAM, QD

REACTIONS (3)
  - Drug ineffective for unapproved indication [Fatal]
  - Disease progression [Fatal]
  - Off label use [Unknown]
